FAERS Safety Report 9276100 (Version 2)
Quarter: 2013Q2

REPORT INFORMATION
  Report Type: Spontaneous
  Country: US (occurrence: US)
  Receive Date: 20130507
  Receipt Date: 20130617
  Transmission Date: 20140414
  Serious: Yes (Other)
  Sender: FDA-Public Use
  Company Number: US-PFIZER INC-2013138399

PATIENT
  Age: 66 Year
  Sex: Female
  Weight: 93 kg

DRUGS (2)
  1. PREMARIN [Suspect]
     Indication: MENOPAUSE
     Dosage: 1.25 MG, DAILY
     Route: 048
  2. DETROL LA [Suspect]
     Indication: HYPERTONIC BLADDER
     Dosage: 4 MG, DAILY

REACTIONS (1)
  - Pneumonia [Not Recovered/Not Resolved]
